FAERS Safety Report 18464870 (Version 2)
Quarter: 2021Q2

REPORT INFORMATION
  Report Type: Report from Study
  Country: US (occurrence: US)
  Receive Date: 20201104
  Receipt Date: 20210607
  Transmission Date: 20210717
  Serious: Yes (Death, Life-Threatening, Hospitalization, Disabling)
  Sender: FDA-Public Use
  Company Number: US-PFIZER INC-2020364859

PATIENT
  Age: 69 Year
  Sex: Female
  Weight: 53 kg

DRUGS (19)
  1. ABBV?621 [Suspect]
     Active Substance: EFTOZANERMIN ALFA
     Indication: NEOPLASM
     Dosage: 3.75 MG/KG, 1 IN 2 WK, DAYS 1 AND 15 OF A 28?DAY CYCLE
     Route: 042
     Dates: start: 20200810, end: 20200825
  2. EMLA [Concomitant]
     Active Substance: LIDOCAINE\PRILOCAINE
     Indication: PAIN PROPHYLAXIS
     Dosage: 1 APPLICATION, AS REQUIRED
     Route: 061
     Dates: start: 20200416
  3. ONDANSETRON [Concomitant]
     Active Substance: ONDANSETRON
     Indication: PROPHYLAXIS OF NAUSEA AND VOMITING
     Dosage: 8 MG, 3 IN 1 D (24 MG)
     Route: 048
     Dates: start: 20200825
  4. IRINOTECAN HCL [Suspect]
     Active Substance: IRINOTECAN HYDROCHLORIDE
     Indication: NEOPLASM
     Dosage: 180 MG/M2, 1 IN 2 WK, DAYS 1 AND 15 OF A 28?DAY CYCLE
     Route: 042
     Dates: start: 20200810, end: 20200825
  5. AMLODIPINE [Concomitant]
     Active Substance: AMLODIPINE BESYLATE
     Indication: HYPERTENSION
     Dosage: 5 MG, 1 IN 1 D
     Route: 048
     Dates: start: 20190901
  6. SIMVASTATIN. [Concomitant]
     Active Substance: SIMVASTATIN
     Indication: HYPERLIPIDAEMIA
     Dosage: 20 MG, 1 IN 1 D
     Route: 048
     Dates: start: 20160701
  7. IPRATROPIUM [Concomitant]
     Active Substance: IPRATROPIUM
     Indication: SEASONAL ALLERGY
     Dosage: 42 UG, AS REQUIRED
     Route: 045
     Dates: start: 20191216
  8. PROTONIX [Concomitant]
     Active Substance: PANTOPRAZOLE SODIUM
     Indication: GASTROOESOPHAGEAL REFLUX DISEASE
     Dosage: 40 MG/KG, 1 IN 1 D
     Route: 048
     Dates: start: 20191003
  9. IMODIUM [Concomitant]
     Active Substance: LOPERAMIDE HYDROCHLORIDE
     Indication: DIARRHOEA
     Dosage: 2 MG, AS REQUIRED
     Route: 048
     Dates: start: 20200817
  10. 5?FU [Suspect]
     Active Substance: FLUOROURACIL
     Dosage: 2400 MG/M2, 1 IN 2 WK, DAYS 1 AND 15 OF A 28?DAY CYCLE
     Route: 042
     Dates: start: 20200810, end: 20200827
  11. PROBIOTICS [Concomitant]
     Active Substance: PROBIOTICS NOS
     Indication: SUPPLEMENTATION THERAPY
     Dosage: 1 APPLICATION, 1 IN 1 D
     Route: 048
     Dates: start: 20180701
  12. LEUCOVORIN. [Suspect]
     Active Substance: LEUCOVORIN
     Indication: NEOPLASM
     Dosage: 400 MG/M2, 1 IN 2 WK, DAYS 1 AND 15 OF A 28?DAY CYCLE
     Route: 042
     Dates: start: 20200810, end: 20200825
  13. 5?FU [Suspect]
     Active Substance: FLUOROURACIL
     Indication: NEOPLASM
     Dosage: 400 MG/M2, 1 IN 2 WK, DAYS 1 AND 15 OF A 28?DAY CYCLE
     Route: 040
     Dates: start: 20200810, end: 20200825
  14. VITAMIN B12 [Concomitant]
     Active Substance: CYANOCOBALAMIN
     Indication: SUPPLEMENTATION THERAPY
     Dosage: 2500 UG, 1 IN 1 D
     Route: 048
     Dates: start: 20190901
  15. FLONASE [Concomitant]
     Active Substance: FLUTICASONE PROPIONATE
     Indication: SEASONAL ALLERGY
     Dosage: 50 UG, 1 IN 1 D
     Route: 045
     Dates: start: 20120710
  16. CENTRUM [Concomitant]
     Active Substance: VITAMINS
     Indication: SUPPLEMENTATION THERAPY
     Dosage: 1 TABLET, 1 IN 1 D
     Route: 048
     Dates: start: 20190901
  17. GABAPENTIN. [Concomitant]
     Active Substance: GABAPENTIN
     Indication: NEUROPATHY PERIPHERAL
     Dosage: 900 MG, 1 IN 1 D
     Route: 048
     Dates: start: 20180518
  18. CLARINEX [Concomitant]
     Active Substance: DESLORATADINE
     Indication: SEASONAL ALLERGY
     Dosage: 5 MG
     Route: 048
     Dates: start: 20120710
  19. SYNTHROID [Concomitant]
     Active Substance: LEVOTHYROXINE SODIUM
     Indication: HYPOTHYROIDISM
     Dosage: 25 UG, 1 IN 1 D
     Route: 048
     Dates: start: 20190901

REACTIONS (3)
  - Nausea [Recovered/Resolved]
  - Neutropenia [Not Recovered/Not Resolved]
  - Pulmonary embolism [Fatal]

NARRATIVE: CASE EVENT DATE: 20200826
